FAERS Safety Report 7208518-3 (Version None)
Quarter: 2010Q4

REPORT INFORMATION
  Report Type: 
  Country: None (occurrence: None)
  Receive Date: 20101222
  Receipt Date: 20101216
  Transmission Date: 20110411
  Serious: Yes (Other)
  Sender: FDA-Public Use
  Company Number: TRP_07472_2010

PATIENT
  Sex: Male
  Weight: 102.5129 kg

DRUGS (9)
  1. INFERGEN [Suspect]
     Indication: HEPATITIS C
     Dosage: (15 UG QD SUBCUTANEOUS)
     Route: 058
     Dates: start: 20101129
  2. RIBAVIRIN [Suspect]
     Indication: HEPATITIS C
     Dosage: (1200 MG, DAILY ORAL)
     Route: 048
     Dates: start: 20101129
  3. CITALOPRAM [Concomitant]
  4. TRAZODONE HCL [Concomitant]
  5. ATENOLOL [Concomitant]
  6. HYDROCHLOROTHIAZIDE [Concomitant]
  7. AMLODIPINE [Concomitant]
  8. VITAMINS B, A, E [Concomitant]
  9. FOLIC ACID [Concomitant]

REACTIONS (4)
  - DECREASED APPETITE [None]
  - FATIGUE [None]
  - NAUSEA [None]
  - WEIGHT DECREASED [None]
